FAERS Safety Report 10882516 (Version 4)
Quarter: 2015Q2

REPORT INFORMATION
  Report Type: Spontaneous
  Country: US (occurrence: US)
  Receive Date: 20150303
  Receipt Date: 20150519
  Transmission Date: 20150821
  Serious: Yes (Other)
  Sender: FDA-Public Use
  Company Number: US-BAYER-2015-030870

PATIENT
  Age: 36 Year
  Sex: Female
  Weight: 84.81 kg

DRUGS (1)
  1. MIRENA [Suspect]
     Active Substance: LEVONORGESTREL
     Indication: CONTRACEPTION
     Dosage: 20 MCG/24HR, CONT
     Route: 015
     Dates: start: 20141216

REACTIONS (5)
  - Drug ineffective [None]
  - Feeling abnormal [Not Recovered/Not Resolved]
  - Pregnancy with contraceptive device [Not Recovered/Not Resolved]
  - Breast tenderness [Not Recovered/Not Resolved]
  - Embedded device [Not Recovered/Not Resolved]

NARRATIVE: CASE EVENT DATE: 2014
